FAERS Safety Report 8488612-X (Version None)
Quarter: 2012Q3

REPORT INFORMATION
  Report Type: 
  Country: None (occurrence: None)
  Receive Date: 20120705
  Receipt Date: 20120702
  Transmission Date: 20120928
  Serious: Yes (Life-Threatening, Other)
  Sender: FDA-Public Use
  Company Number: PHHY2012CH056302

PATIENT
  Age: 7 Year
  Sex: Male

DRUGS (4)
  1. NIFEDIPINE [Interacting]
     Indication: HYPERTENSION
  2. PREDNISOLONE [Suspect]
     Indication: RENAL TRANSPLANT
  3. CYCLOSPORINE [Interacting]
     Indication: RENAL TRANSPLANT
  4. MYCOPHENOLATE MOFETIL [Suspect]
     Indication: RENAL TRANSPLANT

REACTIONS (13)
  - PYREXIA [None]
  - HYPERTENSION [None]
  - VIRAL OESOPHAGITIS [None]
  - VENTRICULAR EXTRASYSTOLES [None]
  - ABDOMINAL PAIN UPPER [None]
  - DRUG INTERACTION [None]
  - CARDIAC FAILURE [None]
  - VIRAL MYOCARDITIS [None]
  - EJECTION FRACTION DECREASED [None]
  - GASTROENTERITIS ADENOVIRUS [None]
  - HYPOTENSION [None]
  - DILATATION VENTRICULAR [None]
  - VOMITING [None]
